FAERS Safety Report 6644473-2 (Version None)
Quarter: 2010Q1

REPORT INFORMATION
  Report Type: 
  Country: None (occurrence: None)
  Receive Date: 20100322
  Receipt Date: 20100312
  Transmission Date: 20100710
  Serious: Yes (Death, Other)
  Sender: FDA-Public Use
  Company Number: US-ROCHE-691728

PATIENT
  Age: 55 Year
  Sex: Female

DRUGS (2)
  1. BEVACIZUMAB [Suspect]
     Indication: FALLOPIAN TUBE CANCER
     Route: 065
  2. DOCETAXEL [Suspect]
     Indication: FALLOPIAN TUBE CANCER
     Route: 065

REACTIONS (2)
  - DEATH [None]
  - GASTROINTESTINAL PERFORATION [None]
